FAERS Safety Report 16100540 (Version 1)
Quarter: 2019Q1

REPORT INFORMATION
  Report Type: Spontaneous
  Country: US (occurrence: US)
  Receive Date: 20190321
  Receipt Date: 20190321
  Transmission Date: 20190418
  Serious: Yes (Other)
  Sender: FDA-Public Use
  Company Number: US-BAYER-2019-055656

PATIENT
  Age: 60 Year
  Sex: Male

DRUGS (3)
  1. ERTAPENEM. [Concomitant]
     Active Substance: ERTAPENEM SODIUM
     Route: 042
  2. CIPROFLOXACIN. [Suspect]
     Active Substance: CIPROFLOXACIN
     Dosage: 500 MG, BID
  3. CEFTAZIDIME. [Concomitant]
     Active Substance: CEFTAZIDIME

REACTIONS (1)
  - Pathogen resistance [None]
